FAERS Safety Report 14061284 (Version 6)
Quarter: 2018Q2

REPORT INFORMATION
  Report Type: Report from Study
  Country: None (occurrence: US)
  Receive Date: 20171009
  Receipt Date: 20180403
  Transmission Date: 20180711
  Serious: Yes (Hospitalization, Other)
  Sender: FDA-Public Use
  Company Number: US-ABBVIE-17K-163-2124543-00

PATIENT
  Sex: Male

DRUGS (1)
  1. HUMIRA [Suspect]
     Active Substance: ADALIMUMAB
     Indication: COLITIS ULCERATIVE
     Route: 058

REACTIONS (5)
  - Dehydration [Recovering/Resolving]
  - Acute kidney injury [Recovered/Resolved]
  - Diarrhoea [Not Recovered/Not Resolved]
  - Hypotension [Recovered/Resolved]
  - Palpitations [Not Recovered/Not Resolved]
